FAERS Safety Report 9424726 (Version 2)
Quarter: 2014Q1

REPORT INFORMATION
  Report Type: Spontaneous
  Country: TH (occurrence: TH)
  Receive Date: 20130729
  Receipt Date: 20140122
  Transmission Date: 20141002
  Serious: Yes (Other)
  Sender: FDA-Public Use
  Company Number: TH-ELI_LILLY_AND_COMPANY-TH201307008085

PATIENT
  Age: 26 Year
  Sex: Male

DRUGS (2)
  1. ZYPREXA [Suspect]
     Indication: DELIRIUM
     Dosage: 10 MG, SINGLE
     Route: 030
     Dates: start: 20130715, end: 20130715
  2. ZYPREXA [Suspect]
     Indication: SLEEP DISORDER

REACTIONS (2)
  - Penile vein thrombosis [Recovered/Resolved]
  - Priapism [Unknown]
